FAERS Safety Report 10037424 (Version 1)
Quarter: 2014Q1

REPORT INFORMATION
  Report Type: Spontaneous
  Country: DE (occurrence: None)
  Receive Date: 20140324
  Receipt Date: 20140324
  Transmission Date: 20141002
  Serious: Yes (Hospitalization)
  Sender: FDA-Public Use
  Company Number: FK201400896

PATIENT
  Age: 60 Year
  Sex: Female

DRUGS (2)
  1. CLADRIBINE [Suspect]
     Indication: NON-HODGKIN^S LYMPHOMA
     Dosage: 7.5MG, 1 IN 1 D
     Dates: start: 199805, end: 199811
  2. MITOXANTRONE (MITOXANTRONE) [Concomitant]

REACTIONS (2)
  - Progressive multifocal leukoencephalopathy [None]
  - JC virus test positive [None]
